FAERS Safety Report 15551992 (Version 2)
Quarter: 2018Q4

REPORT INFORMATION
  Report Type: Spontaneous
  Country: US (occurrence: US)
  Receive Date: 20181025
  Receipt Date: 20181220
  Transmission Date: 20190205
  Serious: Yes (Hospitalization)
  Sender: FDA-Public Use
  Company Number: US-ASTRAZENECA-2018SF37721

PATIENT
  Age: 23774 Day
  Sex: Male
  Weight: 71.7 kg

DRUGS (3)
  1. INCRUSE POWDERED INHALER [Concomitant]
     Indication: CHRONIC OBSTRUCTIVE PULMONARY DISEASE
     Route: 055
     Dates: start: 201802
  2. VENTOLIN [Concomitant]
     Active Substance: ALBUTEROL SULFATE
     Indication: CHRONIC OBSTRUCTIVE PULMONARY DISEASE
     Dosage: SIX TIMES A DAY
     Route: 055
  3. SYMBICORT [Suspect]
     Active Substance: BUDESONIDE\FORMOTEROL FUMARATE DIHYDRATE
     Indication: CHRONIC OBSTRUCTIVE PULMONARY DISEASE
     Dosage: 160/4.5 UG 2 PUFFS IN THE MORNING AND 2 PUFFS IN THE EVENING
     Route: 055
     Dates: start: 20141203

REACTIONS (15)
  - Rheumatoid arthritis [Unknown]
  - Pneumonia [Recovered/Resolved]
  - Cataract [Unknown]
  - Off label use [Not Recovered/Not Resolved]
  - Gastrooesophageal reflux disease [Unknown]
  - Intentional product misuse [Unknown]
  - Pneumonia bacterial [Recovered/Resolved]
  - Cough [Unknown]
  - Weight decreased [Unknown]
  - Muscle atrophy [Unknown]
  - Limb discomfort [Unknown]
  - Asthma [Unknown]
  - Visual impairment [Unknown]
  - Muscle strain [Unknown]
  - Device failure [Unknown]

NARRATIVE: CASE EVENT DATE: 20141203
